FAERS Safety Report 4821695-4 (Version None)
Quarter: 2005Q4

REPORT INFORMATION
  Report Type: 
  Country: None (occurrence: None)
  Receive Date: 20051107
  Receipt Date: 20051028
  Transmission Date: 20060501
  Serious: Yes (Other)
  Sender: FDA-Public Use
  Company Number: PHMT2005CA00480

PATIENT
  Age: 83 Year
  Sex: Female

DRUGS (1)
  1. EXELON EXELON+CAP [Suspect]
     Indication: DEMENTIA ALZHEIMER'S TYPE
     Route: 048
     Dates: start: 20050715

REACTIONS (3)
  - EXTRAPYRAMIDAL DISORDER [None]
  - FALL [None]
  - PLEUROTHOTONUS [None]
